FAERS Safety Report 10927937 (Version 1)
Quarter: 2015Q1

REPORT INFORMATION
  Report Type: Spontaneous
  Country: GR (occurrence: GR)
  Receive Date: 20150319
  Receipt Date: 20150319
  Transmission Date: 20150721
  Serious: Yes (Other)
  Sender: FDA-Public Use
  Company Number: GR-ACCORD-029360

PATIENT
  Age: 60 Year
  Sex: Female

DRUGS (4)
  1. BASILIXIMAB [Suspect]
     Active Substance: BASILIXIMAB
     Indication: RENAL TRANSPLANT
  2. CICLOSPORIN [Suspect]
     Active Substance: CYCLOSPORINE
     Indication: RENAL TRANSPLANT
     Dosage: REDUCED DOSE TO 100 MG/24 HR TO HALF OF 50 MG/ HR
  3. METHYLPREDNISOLONE. [Suspect]
     Active Substance: METHYLPREDNISOLONE
     Indication: RENAL TRANSPLANT
     Dosage: REDUCED DOSE TO 4 MG/24 HR
  4. MYCOPHENOLIC ACID. [Suspect]
     Active Substance: MYCOPHENOLIC ACID
     Indication: RENAL TRANSPLANT
     Dosage: REDUCED DOSE TO 720 MG/24 HR.

REACTIONS (3)
  - Renal impairment [Recovered/Resolved]
  - Chronic myeloid leukaemia [Recovered/Resolved]
  - Cytomegalovirus viraemia [Recovered/Resolved]
